FAERS Safety Report 12739143 (Version 1)
Quarter: 2016Q3

REPORT INFORMATION
  Report Type: Spontaneous
  Country: AU (occurrence: AU)
  Receive Date: 20160913
  Receipt Date: 20160913
  Transmission Date: 20161109
  Serious: Yes (Other)
  Sender: FDA-Public Use
  Company Number: AU-CELGENEUS-AUS-2015104632

PATIENT
  Age: 59 Year
  Sex: Female

DRUGS (5)
  1. METHOTREXATE. [Concomitant]
     Active Substance: METHOTREXATE
     Indication: T-CELL LYMPHOMA
     Dosage: HD
     Route: 041
  2. HYDROCORTISONE. [Concomitant]
     Active Substance: HYDROCORTISONE
     Indication: T-CELL LYMPHOMA
     Route: 065
  3. METHOTREXATE. [Concomitant]
     Active Substance: METHOTREXATE
     Route: 037
  4. ROMIDEPSIN [Suspect]
     Active Substance: ROMIDEPSIN
     Indication: PERIPHERAL T-CELL LYMPHOMA UNSPECIFIED
     Route: 041
  5. ROMIDEPSIN [Suspect]
     Active Substance: ROMIDEPSIN
     Route: 041

REACTIONS (3)
  - Confusional state [Unknown]
  - Peripheral T-cell lymphoma unspecified refractory [Unknown]
  - Aphasia [Unknown]
